FAERS Safety Report 10190896 (Version 1)
Quarter: 2014Q2

REPORT INFORMATION
  Report Type: Spontaneous
  Country: US (occurrence: US)
  Receive Date: 20140523
  Receipt Date: 20140523
  Transmission Date: 20141212
  Serious: Yes (Other)
  Sender: FDA-Public Use
  Company Number: US-AMGEN INC.-USASP2014037406

PATIENT
  Age: 42 Year
  Sex: Female

DRUGS (5)
  1. ENBREL [Suspect]
     Indication: PRODUCT USED FOR UNKNOWN INDICATION
     Dosage: 50 MG, QWK
     Route: 065
     Dates: end: 201307
  2. EFFEXOR [Concomitant]
     Dosage: 37.5 MG, UNK
  3. VITAMIN D                          /00107901/ [Concomitant]
     Dosage: 1000 UNIT, UNK
  4. ADDERALL [Concomitant]
     Dosage: 10 MG, UNK
  5. ATENOLOL [Concomitant]
     Dosage: 25 MG, UNK

REACTIONS (2)
  - Staphylococcal infection [Unknown]
  - Subcutaneous abscess [Unknown]
